FAERS Safety Report 23338041 (Version 1)
Quarter: 2023Q4

REPORT INFORMATION
  Report Type: Spontaneous
  Country: US (occurrence: None)
  Receive Date: 20231222
  Receipt Date: 20231222
  Transmission Date: 20240110
  Serious: Yes (Life-Threatening)
  Sender: FDA-Public Use
  Company Number: None

PATIENT
  Age: 58 Year
  Sex: Female
  Weight: 90 kg

DRUGS (3)
  1. OZEMPIC [Suspect]
     Active Substance: SEMAGLUTIDE
     Indication: Type 2 diabetes mellitus
  2. TRULICITY [Suspect]
     Active Substance: DULAGLUTIDE
  3. MOUNJARO [Suspect]
     Active Substance: TIRZEPATIDE

REACTIONS (10)
  - Urosepsis [None]
  - Pain [None]
  - Urinary tract infection [None]
  - Blood culture positive [None]
  - Abdominal pain lower [None]
  - Chills [None]
  - Toothache [None]
  - Gingival pain [None]
  - Arthralgia [None]
  - Hyperaesthesia teeth [None]

NARRATIVE: CASE EVENT DATE: 20230620
